FAERS Safety Report 12842850 (Version 1)
Quarter: 2016Q4

REPORT INFORMATION
  Report Type: Spontaneous
  Country: US (occurrence: US)
  Receive Date: 20161012
  Receipt Date: 20161012
  Transmission Date: 20170207
  Serious: No
  Sender: FDA-Public Use
  Company Number: None

PATIENT
  Age: 81 Year
  Sex: Male

DRUGS (1)
  1. REVLIMID [Suspect]
     Active Substance: LENALIDOMIDE
     Indication: MYELOFIBROSIS
     Route: 048
     Dates: start: 20140502, end: 20141008

REACTIONS (3)
  - Treatment failure [None]
  - Therapy non-responder [None]
  - Full blood count decreased [None]

NARRATIVE: CASE EVENT DATE: 20141008
